FAERS Safety Report 10467093 (Version 1)
Quarter: 2014Q3

REPORT INFORMATION
  Report Type: Spontaneous
  Country: US (occurrence: US)
  Receive Date: 20140922
  Receipt Date: 20140922
  Transmission Date: 20150326
  Serious: No
  Sender: FDA-Public Use
  Company Number: US-ASTRAZENECA-2014SE68191

PATIENT
  Sex: Female

DRUGS (15)
  1. NEXIUM [Suspect]
     Active Substance: ESOMEPRAZOLE MAGNESIUM
     Route: 048
  2. OMEPRAZOLE. [Suspect]
     Active Substance: OMEPRAZOLE
     Route: 048
  3. LIPITOR [Suspect]
     Active Substance: ATORVASTATIN CALCIUM
     Route: 065
  4. SYNVISC [Suspect]
     Active Substance: HYALURONATE SODIUM
     Route: 065
  5. ELAVIL [Suspect]
     Active Substance: AMITRIPTYLINE HYDROCHLORIDE
     Route: 065
  6. NORVASC [Suspect]
     Active Substance: AMLODIPINE BESYLATE
     Route: 065
  7. MORPHINE SULFATE(NON AZ PRODUCT) [Suspect]
     Active Substance: MORPHINE SULFATE
     Route: 065
  8. HYDROCODONE [Suspect]
     Active Substance: HYDROCODONE
     Route: 065
  9. TETANUS [Suspect]
     Active Substance: UNSPECIFIED INGREDIENT
     Route: 065
  10. NEOMYCIN SULFATE. [Suspect]
     Active Substance: NEOMYCIN SULFATE
     Route: 065
  11. NORCO [Suspect]
     Active Substance: ACETAMINOPHEN\HYDROCODONE BITARTRATE
     Route: 065
  12. LEVAQUIN [Suspect]
     Active Substance: LEVOFLOXACIN
     Route: 065
  13. PREVACID [Suspect]
     Active Substance: LANSOPRAZOLE
     Route: 065
  14. VICKS NYQUIL [Suspect]
     Active Substance: ACETAMINOPHEN\DEXTROMETHORPHAN HYDROBROMIDE\DOXYLAMINE SUCCINATE
     Route: 065
  15. PROZAC [Suspect]
     Active Substance: FLUOXETINE HYDROCHLORIDE
     Route: 065

REACTIONS (1)
  - Drug hypersensitivity [Unknown]
